FAERS Safety Report 6528859-2 (Version None)
Quarter: 2010Q1

REPORT INFORMATION
  Report Type: 
  Country: None (occurrence: None)
  Receive Date: 20100106
  Receipt Date: 20091222
  Transmission Date: 20100710
  Serious: Yes (Hospitalization, Other)
  Sender: FDA-Public Use
  Company Number: US-B.I. PHARMACEUTICALS,INC./RIDGEFIELD-2009-RO-01283RO

PATIENT
  Age: 0 Day
  Sex: Male

DRUGS (16)
  1. MORPHINE [Suspect]
     Indication: PAIN
  2. MORPHINE [Suspect]
     Indication: IRRITABILITY
  3. CALCIUM GLUCONATE [Suspect]
     Indication: HYPOCALCAEMIA
     Route: 042
  4. LORAZEPAM [Suspect]
     Indication: PAIN
  5. LORAZEPAM [Suspect]
     Indication: IRRITABILITY
  6. LORAZEPAM [Suspect]
  7. ANTIBIOTICS [Suspect]
  8. OXYGEN [Suspect]
     Indication: OXYGEN SATURATION DECREASED
  9. DEXTROSE [Suspect]
     Indication: HYPOGLYCAEMIA
  10. RANITIDINE [Suspect]
     Indication: GASTROOESOPHAGEAL REFLUX DISEASE
  11. FENTANYL-100 [Suspect]
  12. PHENOBARBITAL [Suspect]
     Indication: IRRITABILITY
  13. PHENOBARBITAL [Suspect]
     Indication: CHOLESTASIS
  14. GABAPENTIN [Suspect]
     Indication: IRRITABILITY
  15. GABAPENTIN [Suspect]
  16. GABAPENTIN [Suspect]

REACTIONS (22)
  - CHOLANGITIS [None]
  - CHOLELITHIASIS [None]
  - CHOLESTASIS [None]
  - DEPRESSED LEVEL OF CONSCIOUSNESS [None]
  - DEVELOPMENTAL DELAY [None]
  - DIARRHOEA [None]
  - DRUG INEFFECTIVE [None]
  - FEEDING DISORDER [None]
  - GASTROOESOPHAGEAL REFLUX DISEASE [None]
  - HEPATITIS [None]
  - HYPOGLYCAEMIA [None]
  - HYPOTONIA [None]
  - IRRITABILITY [None]
  - MACROCEPHALY [None]
  - MUSCLE CONTRACTURE [None]
  - NECROTISING COLITIS [None]
  - NYSTAGMUS [None]
  - PAIN [None]
  - PNEUMATOSIS INTESTINALIS [None]
  - PULMONARY HYPERTENSION [None]
  - PYREXIA [None]
  - RESPIRATORY DISTRESS [None]
